FAERS Safety Report 20292048 (Version 1)
Quarter: 2022Q1

REPORT INFORMATION
  Report Type: Spontaneous
  Country: US (occurrence: US)
  Receive Date: 20220104
  Receipt Date: 20220104
  Transmission Date: 20220423
  Serious: No
  Sender: FDA-Public Use
  Company Number: US-ELI_LILLY_AND_COMPANY-US202112013246

PATIENT
  Sex: Female

DRUGS (2)
  1. ETESEVIMAB [Suspect]
     Active Substance: ETESEVIMAB
     Indication: COVID-19
     Dosage: UNK, SINGLE
     Route: 042
     Dates: start: 20211223, end: 20211223
  2. BAMLANIVIMAB [Suspect]
     Active Substance: BAMLANIVIMAB
     Indication: COVID-19
     Dosage: UNK, SINGLE
     Route: 042
     Dates: start: 20211223, end: 20211223

REACTIONS (7)
  - Pruritus [Unknown]
  - Pain of skin [Unknown]
  - Abdominal pain upper [Unknown]
  - Burning sensation [Unknown]
  - Eating disorder [Unknown]
  - Drug hypersensitivity [Unknown]
  - Rash [Unknown]
